FAERS Safety Report 7765249-9 (Version None)
Quarter: 2011Q3

REPORT INFORMATION
  Report Type: 
  Country: None (occurrence: None)
  Receive Date: 20110921
  Receipt Date: 20110912
  Transmission Date: 20111222
  Serious: Yes (Hospitalization)
  Sender: FDA-Public Use
  Company Number: JP-GLAXOSMITHKLINE-B0738443A

PATIENT
  Sex: Male
  Weight: 48 kg

DRUGS (7)
  1. FUROSEMIDE [Concomitant]
     Dosage: 20MG PER DAY
     Route: 048
  2. FLUTICASONE PROPIONATE/SALMETEROL [Suspect]
     Indication: EMPHYSEMA
     Dosage: 500MCG PER DAY
     Route: 055
     Dates: start: 20100603
  3. NITRODERM [Concomitant]
     Dosage: 25MG PER DAY
     Route: 062
  4. THEO-DUR [Concomitant]
     Indication: EMPHYSEMA
     Dosage: 400MG PER DAY
     Route: 048
  5. SPIRIVA [Concomitant]
     Indication: EMPHYSEMA
     Dosage: 18MCG PER DAY
     Route: 055
  6. CLARITHROMYCIN [Concomitant]
     Indication: EMPHYSEMA
     Dosage: 200MG PER DAY
     Route: 048
  7. ASPIRIN [Concomitant]
     Dosage: 100MG PER DAY
     Route: 048

REACTIONS (3)
  - PNEUMOTHORAX [None]
  - HYPOXIA [None]
  - PNEUMONIA BACTERIAL [None]
